FAERS Safety Report 23871796 (Version 2)
Quarter: 2024Q2

REPORT INFORMATION
  Report Type: Report from Study
  Country: CA (occurrence: CA)
  Receive Date: 20240520
  Receipt Date: 20240626
  Transmission Date: 20240716
  Serious: Yes (Hospitalization)
  Sender: FDA-Public Use
  Company Number: CA-TAKEDA-2024TUS047315

PATIENT
  Age: 15 Year
  Sex: Male

DRUGS (2)
  1. VEDOLIZUMAB [Suspect]
     Active Substance: VEDOLIZUMAB
     Indication: Colitis ulcerative
     Dosage: 300 MILLIGRAM
     Route: 042
     Dates: start: 20240508
  2. PREDNISONE [Concomitant]
     Active Substance: PREDNISONE
     Dosage: UNK
     Dates: start: 20240510

REACTIONS (5)
  - Weight decreased [Unknown]
  - Abdominal pain [Unknown]
  - Vomiting [Unknown]
  - Off label use [Unknown]
  - Therapeutic reaction time decreased [Recovered/Resolved]

NARRATIVE: CASE EVENT DATE: 20240508
